FAERS Safety Report 19169958 (Version 6)
Quarter: 2022Q2

REPORT INFORMATION
  Report Type: Spontaneous
  Country: IN (occurrence: IN)
  Receive Date: 20210422
  Receipt Date: 20220627
  Transmission Date: 20220721
  Serious: Yes (Other)
  Sender: FDA-Public Use
  Company Number: IN-PFIZER INC-2020144319

PATIENT
  Age: 64 Year
  Sex: Male

DRUGS (16)
  1. SUTENT [Suspect]
     Active Substance: SUNITINIB MALATE
     Indication: Metastatic renal cell carcinoma
     Dosage: 50 MG, CYCLIC (ONCE A DAY 1-0-0 FOR 28 DAYS ON AND 14 DAYS OFF))
     Route: 048
     Dates: start: 20190121
  2. GRANIFORCE [Concomitant]
     Dosage: 1 MG, 1X/DAY (1-0-0)
  3. BECOSULES [ASCORBIC ACID;VITAMIN B NOS] [Concomitant]
     Dosage: UNK, 1X/DAY (1-0-0)
  4. CALDIKIND PLUS [Concomitant]
     Dosage: UNK, 1X/DAY (1-0-0)
  5. DOMPERIDONE\PANTOPRAZOLE SODIUM [Concomitant]
     Active Substance: DOMPERIDONE\PANTOPRAZOLE SODIUM
     Dosage: UNK, 2X/DAY (1-0-1)
  6. FERONIA XT [Concomitant]
     Dosage: UNK, 2X/DAY (1-0-1)
  7. ASCORBIC ACID [Concomitant]
     Active Substance: ASCORBIC ACID
     Dosage: UNK, 2X/DAY (1-0-1)
  8. BETADINE [Concomitant]
     Active Substance: POVIDONE-IODINE
     Dosage: UNK, GARGLE 10 TIMES DAY
  9. KABIPRO [Concomitant]
     Dosage: UNK, 2 TSF-0-2 TSF
  10. KABIPRO [Concomitant]
     Dosage: UNK, 2 TSP, 3 TIMES/DAY WITH MTH
  11. XGEVA [Concomitant]
     Active Substance: DENOSUMAB
     Dosage: 120 MG, MONTHLY, ) SQ ONCE A MONTH
  12. SHELCAL M [Concomitant]
     Dosage: UNK, 1X/DAY (1-0-0)
  13. BETONIN [Concomitant]
     Dosage: UNK, 2 TSP-2 TSP-2TSP
  14. MUCOPAIN [Concomitant]
     Dosage: UNK
  15. AMLODIPINE BESYLATE [Concomitant]
     Active Substance: AMLODIPINE BESYLATE
     Dosage: 5 MG, 2X/DAY (1-0-1)
  16. DENOCI [Concomitant]
     Dosage: UNK, MONTHLY

REACTIONS (7)
  - Gastric antral vascular ectasia [Unknown]
  - Asthenia [Unknown]
  - Oral disorder [Recovering/Resolving]
  - Oedema peripheral [Unknown]
  - Back pain [Unknown]
  - Haemoglobin decreased [Unknown]
  - Blood creatinine increased [Unknown]
